FAERS Safety Report 19354844 (Version 1)
Quarter: 2021Q2

REPORT INFORMATION
  Report Type: Spontaneous
  Country: CA (occurrence: CA)
  Receive Date: 20210602
  Receipt Date: 20210602
  Transmission Date: 20210717
  Serious: Yes (Other)
  Sender: FDA-Public Use
  Company Number: CA-ROCHE-2838206

PATIENT
  Age: 63 Year
  Sex: Male

DRUGS (1)
  1. RIVOTRIL [Suspect]
     Active Substance: CLONAZEPAM
     Indication: PRODUCT USED FOR UNKNOWN INDICATION
     Dosage: 2 X 0.5 MG A DAY;
     Route: 065

REACTIONS (3)
  - Drug withdrawal syndrome [Unknown]
  - Illness [Unknown]
  - Spinal column injury [Unknown]
